FAERS Safety Report 16545132 (Version 2)
Quarter: 2019Q4

REPORT INFORMATION
  Report Type: Report from Study
  Country: CA (occurrence: CA)
  Receive Date: 20190709
  Receipt Date: 20191018
  Transmission Date: 20200122
  Serious: Yes (Other)
  Sender: FDA-Public Use
  Company Number: CA-JNJFOC-20190636355

PATIENT
  Age: 46 Year
  Sex: Male

DRUGS (1)
  1. REMICADE [Suspect]
     Active Substance: INFLIXIMAB
     Indication: CROHN^S DISEASE
     Route: 042
     Dates: start: 20161014

REACTIONS (2)
  - Skin laceration [Recovered/Resolved]
  - Appendix cancer [Recovered/Resolved]

NARRATIVE: CASE EVENT DATE: 20190625
